FAERS Safety Report 24121643 (Version 1)
Quarter: 2024Q3

REPORT INFORMATION
  Report Type: Spontaneous
  Country: CN (occurrence: CN)
  Receive Date: 20240722
  Receipt Date: 20240722
  Transmission Date: 20241016
  Serious: Yes (Other)
  Sender: WOODWARD PHARMA SERVICES
  Company Number: CN-WOODWARD-2024-CN-000285

PATIENT
  Age: 31 Year
  Sex: Female

DRUGS (2)
  1. RABEPRAZOLE SODIUM [Suspect]
     Active Substance: RABEPRAZOLE SODIUM
     Indication: Helicobacter infection
     Dosage: 40.0 MILLIGRAM(S) (20 MILLIGRAM(S), 1 IN 12 HOUR)
     Route: 048
     Dates: start: 20240619, end: 20240628
  2. AMOXICILLIN [Concomitant]
     Active Substance: AMOXICILLIN
     Dosage: 3000 MILLIGRAM(S) (1000 MILLIGRAM(S), 1 IN 8 HOUR)
     Route: 048
     Dates: start: 20240619, end: 20240703

REACTIONS (2)
  - Rash [Unknown]
  - Pruritus [Unknown]

NARRATIVE: CASE EVENT DATE: 20240628
